FAERS Safety Report 6677578-0 (Version None)
Quarter: 2010Q2

REPORT INFORMATION
  Report Type: 
  Country: None (occurrence: None)
  Receive Date: 20100412
  Receipt Date: 20100216
  Transmission Date: 20101027
  Serious: No
  Sender: FDA-Public Use
  Company Number: US-ALEXION-A201000185

PATIENT
  Sex: Male

DRUGS (12)
  1. SOLIRIS [Suspect]
     Indication: PAROXYSMAL NOCTURNAL HAEMOGLOBINURIA
     Dosage: 900 MG, Q2W
     Route: 042
  2. PREDNISOLONE [Concomitant]
     Dosage: 10 MG, QD
     Route: 048
  3. PROCARDIA XL [Concomitant]
     Dosage: 30 MG, QD
     Route: 048
  4. LASIX [Concomitant]
     Dosage: 40 MG, QD
     Route: 048
  5. POTASSIUM [Concomitant]
     Dosage: 20 MEQ, QD
     Route: 048
  6. FLOMAX [Concomitant]
     Dosage: 0.4 MG, QD
     Route: 048
  7. PHENERGAN HCL [Concomitant]
     Dosage: 25 MG, Q4H, PRN
     Route: 048
  8. METHADONE HCL [Concomitant]
     Dosage: 10 MG, QD
     Route: 048
  9. NEURONTIN [Concomitant]
     Dosage: 300 MG, TID
     Route: 048
  10. OMEPRAZOLE [Concomitant]
     Dosage: 40 MG, QD
     Route: 048
  11. COUMADIN [Concomitant]
     Dosage: 7.5 MG, QOD
     Route: 048
  12. COUMADIN [Concomitant]
     Dosage: 10 MG, QOD
     Route: 048

REACTIONS (1)
  - HAEMOGLOBIN DECREASED [None]
